FAERS Safety Report 10905079 (Version 1)
Quarter: 2015Q1

REPORT INFORMATION
  Report Type: Spontaneous
  Country: US (occurrence: None)
  Receive Date: 20150309
  Receipt Date: 20150309
  Transmission Date: 20150721
  Serious: No
  Sender: FDA-Public Use
  Company Number: None

PATIENT
  Age: 15 Year
  Sex: Female
  Weight: 49.9 kg

DRUGS (1)
  1. IMPLANON [Suspect]
     Active Substance: ETONOGESTREL
     Indication: CONTRACEPTION
     Dosage: IMPLANTED IN ARM, IMPLANTED UNDER SKIN
     Route: 058

REACTIONS (6)
  - Dizziness [None]
  - Haemorrhage [None]
  - Headache [None]
  - Dyspnoea [None]
  - Pain in extremity [None]
  - Abdominal pain lower [None]

NARRATIVE: CASE EVENT DATE: 20150301
